FAERS Safety Report 6338008-1 (Version None)
Quarter: 2009Q3

REPORT INFORMATION
  Report Type: 
  Country: None (occurrence: None)
  Receive Date: 20090902
  Receipt Date: 20090820
  Transmission Date: 20100115
  Serious: Yes (Other)
  Sender: FDA-Public Use
  Company Number: GB-PFIZER INC-2009257224

PATIENT
  Age: 59 Year

DRUGS (4)
  1. CHAMPIX [Suspect]
     Indication: SMOKING CESSATION THERAPY
     Dosage: UNK
     Dates: start: 20090316, end: 20090406
  2. ASPIRIN [Concomitant]
  3. PERINDOPRIL [Concomitant]
  4. SIMVASTATIN [Concomitant]

REACTIONS (2)
  - HALLUCINATION, TACTILE [None]
  - HALLUCINATION, VISUAL [None]
